FAERS Safety Report 6587372-7 (Version None)
Quarter: 2010Q1

REPORT INFORMATION
  Report Type: 
  Country: None (occurrence: None)
  Receive Date: 20100217
  Receipt Date: 20090519
  Transmission Date: 20100710
  Serious: No
  Sender: FDA-Public Use
  Company Number: US-ALLERGAN-0907056US

PATIENT
  Sex: Female

DRUGS (2)
  1. BOTOX COSMETIC [Suspect]
     Indication: SKIN WRINKLING
     Dosage: 25 UNITS, SINGLE
     Dates: start: 20090501, end: 20090501
  2. BOTOX COSMETIC [Suspect]
     Dates: start: 20081001, end: 20081001

REACTIONS (2)
  - EYELID PTOSIS [None]
  - LAGOPHTHALMOS [None]
